FAERS Safety Report 5190589-X (Version None)
Quarter: 2006Q4

REPORT INFORMATION
  Report Type: 
  Country: None (occurrence: None)
  Receive Date: 20061222
  Receipt Date: 20060809
  Transmission Date: 20070319
  Serious: No
  Sender: FDA-Public Use
  Company Number: US-BRISTOL-MYERS SQUIBB COMPANY-13470851

PATIENT
  Age: 54 Year
  Sex: Female

DRUGS (11)
  1. ORENCIA [Suspect]
     Indication: RHEUMATOID ARTHRITIS
     Route: 042
     Dates: start: 20060706
  2. PREDNISONE TAB [Concomitant]
  3. METHOTREXATE [Concomitant]
  4. FOLIC ACID [Concomitant]
  5. SYNTHROID [Concomitant]
  6. TENORMIN [Concomitant]
  7. PRILOSEC [Concomitant]
  8. M.V.I. [Concomitant]
  9. ACTONEL [Concomitant]
  10. CITRACAL [Concomitant]
  11. AVALIDE [Concomitant]
     Route: 048

REACTIONS (1)
  - PARAESTHESIA ORAL [None]
